FAERS Safety Report 7184457-1 (Version None)
Quarter: 2010Q4

REPORT INFORMATION
  Report Type: 
  Country: None (occurrence: None)
  Receive Date: 20101222
  Receipt Date: 20100520
  Transmission Date: 20110411
  Serious: No
  Sender: FDA-Public Use
  Company Number: US-AMGEN-TCS413559

PATIENT

DRUGS (4)
  1. ENBREL [Suspect]
     Indication: PSORIATIC ARTHROPATHY
     Dosage: 50 MG, 2 TIMES/WK
     Route: 058
  2. ENBREL [Suspect]
     Indication: PSORIASIS
  3. ADALIMUMAB [Concomitant]
     Dosage: UNK UNK, UNK
     Dates: start: 20091101
  4. REMICADE [Concomitant]
     Dosage: UNK UNK, UNK
     Dates: start: 20091101

REACTIONS (7)
  - APHONIA [None]
  - ASTHMA [None]
  - BRONCHITIS [None]
  - EAR INFECTION [None]
  - FURUNCLE [None]
  - THERAPEUTIC RESPONSE DECREASED [None]
  - WOUND SECRETION [None]
